FAERS Safety Report 8006959-8 (Version None)
Quarter: 2011Q4

REPORT INFORMATION
  Report Type: 
  Country: None (occurrence: None)
  Receive Date: 20111219
  Receipt Date: 20111207
  Transmission Date: 20120403
  Serious: Yes (Other)
  Sender: FDA-Public Use
  Company Number: CA-145266

PATIENT
  Age: 38 Year
  Sex: Male
  Weight: 86 kg

DRUGS (7)
  1. WINRHO SDF [Suspect]
     Dosage: (69.77 UG/KG TOTAL INTRAVENOUS
     Route: 042
  2. PIPERACILLIN AND TAZOBACTAM [Concomitant]
  3. CYCLOMEN [Concomitant]
  4. ACETAMINOPHEN [Concomitant]
  5. TRANEXAMIC ACID [Concomitant]
  6. FUROSEMIDE [Concomitant]
  7. NADOLOL [Concomitant]

REACTIONS (2)
  - HAEMOLYTIC ANAEMIA [None]
  - ANTI-ERYTHROCYTE ANTIBODY POSITIVE [None]
